FAERS Safety Report 5403219-6 (Version None)
Quarter: 2007Q3

REPORT INFORMATION
  Report Type: 
  Country: None (occurrence: None)
  Receive Date: 20070730
  Receipt Date: 20070723
  Transmission Date: 20080115
  Serious: Yes (Hospitalization)
  Sender: FDA-Public Use
  Company Number: 163-21880-07030281

PATIENT
  Age: 81 Year
  Sex: Female
  Weight: 69.8539 kg

DRUGS (15)
  1. REVLIMID [Suspect]
     Indication: MULTIPLE MYELOMA
     Dosage: 25 MG, 1 IN 1 D, ORAL
     Route: 048
     Dates: start: 20070208
  2. DEXAMETHASONE 0.5MG TAB [Suspect]
     Indication: MULTIPLE MYELOMA
     Dosage: 40 MG, 10 TABS DAY 1-4, 9-12, 17-20, ORAL
     Route: 048
  3. ADVIL [Concomitant]
  4. COMPAZINE [Concomitant]
  5. LACTULOSE [Concomitant]
  6. LEXAPRO [Concomitant]
  7. VISCOUS LIDOCAINE              (LIDOCAINE HYDROCHLORIDE) [Concomitant]
  8. MULTIVITAMIN [Concomitant]
  9. NYSTATIN [Concomitant]
  10. OMEPRAZOLE [Concomitant]
  11. OXYCODONE HCL [Concomitant]
  12. OXYCONTIN [Concomitant]
  13. PHENERGAN [Concomitant]
  14. POTASSIUM CHLORIDE [Concomitant]
  15. ZANTAC 150 [Concomitant]

REACTIONS (12)
  - CONSTIPATION [None]
  - DEEP VEIN THROMBOSIS [None]
  - FLATULENCE [None]
  - HEARING IMPAIRED [None]
  - INFECTION [None]
  - INTERNATIONAL NORMALISED RATIO INCREASED [None]
  - MALAISE [None]
  - NAUSEA [None]
  - PROTHROMBIN TIME PROLONGED [None]
  - TONGUE COATED [None]
  - URINARY TRACT INFECTION [None]
  - VESICAL FISTULA [None]
